FAERS Safety Report 8535227-0 (Version None)
Quarter: 2012Q3

REPORT INFORMATION
  Report Type: 
  Country: None (occurrence: None)
  Receive Date: 20120725
  Receipt Date: 20120717
  Transmission Date: 20120928
  Serious: No
  Sender: FDA-Public Use
  Company Number: US-B.I. PHARMACEUTICALS,INC./RIDGEFIELD-2012-BP-13966BP

PATIENT
  Sex: Female

DRUGS (14)
  1. SODIUM BICARBONATE [Concomitant]
     Indication: CROHN'S DISEASE
     Dosage: 2275 MG
     Route: 048
  2. RANITIDINE [Concomitant]
     Indication: CROHN'S DISEASE
     Dosage: 300 MG
     Route: 048
  3. RANITIDINE [Concomitant]
     Indication: GASTROOESOPHAGEAL REFLUX DISEASE
  4. PRESSURE VISION [Concomitant]
     Indication: INTRAOCULAR PRESSURE TEST ABNORMAL
     Dosage: 400 MG
  5. FUROSEMIDE [Concomitant]
     Indication: DIURETIC THERAPY
     Route: 048
     Dates: start: 20120610
  6. TRADJENTA [Suspect]
     Dosage: 2.5 MG
     Route: 048
     Dates: start: 20120607, end: 20120608
  7. PREDNISONE [Concomitant]
     Indication: CROHN'S DISEASE
     Route: 048
  8. MAGNESIUM OXIDE [Concomitant]
     Indication: MINERAL SUPPLEMENTATION
     Route: 048
  9. DILTIAZEM [Concomitant]
     Indication: HYPERTENSION
     Dosage: 240 MG
     Route: 048
  10. METOPROLOL SUCCINATE [Concomitant]
     Indication: HEART RATE INCREASED
     Route: 048
  11. CHROMIUM CHLORIDE [Concomitant]
     Dosage: 800 MG
     Route: 048
  12. TRADJENTA [Suspect]
     Indication: TYPE 2 DIABETES MELLITUS
     Dosage: 5 MG
     Route: 048
     Dates: start: 20120606, end: 20120606
  13. HYDROCODONE [Concomitant]
     Indication: BACK PAIN
     Route: 048
  14. VITAMIN D [Concomitant]
     Indication: SUPPLEMENTATION THERAPY
     Route: 048

REACTIONS (8)
  - OEDEMA PERIPHERAL [None]
  - OROPHARYNGEAL PAIN [None]
  - PALPITATIONS [None]
  - GLOSSODYNIA [None]
  - PAIN IN EXTREMITY [None]
  - RASH [None]
  - PARAESTHESIA [None]
  - SWOLLEN TONGUE [None]
